FAERS Safety Report 21423667 (Version 3)
Quarter: 2022Q4

REPORT INFORMATION
  Report Type: Report from Study
  Country: FR (occurrence: FR)
  Receive Date: 20221007
  Receipt Date: 20221109
  Transmission Date: 20230113
  Serious: Yes (Hospitalization)
  Sender: FDA-Public Use
  Company Number: FR-SA-SAC20220929000135

PATIENT
  Age: 60 Year
  Sex: Male
  Weight: 61 kg

DRUGS (7)
  1. ISATUXIMAB [Suspect]
     Active Substance: ISATUXIMAB
     Indication: Minimal residual disease
     Dosage: 10 MG/KG
     Route: 042
     Dates: start: 20220919, end: 20220919
  2. ISATUXIMAB [Suspect]
     Active Substance: ISATUXIMAB
     Dosage: 10 MG/KG (CYCLE 1 DAY 1,8,15,22, CYCLE2 1,15)
     Route: 042
     Dates: start: 20220808, end: 20220808
  3. CARFILZOMIB [Suspect]
     Active Substance: CARFILZOMIB
     Indication: Minimal residual disease
     Dosage: 56 MG/M2 (CYCLE 2 D1,8,15)
     Route: 042
     Dates: start: 20220919, end: 20220919
  4. CARFILZOMIB [Suspect]
     Active Substance: CARFILZOMIB
     Dosage: 10 MG/M2 (CYCLE 1 DAY1,8,15)
     Route: 042
     Dates: start: 20220808, end: 20220808
  5. LENALIDOMIDE [Suspect]
     Active Substance: LENALIDOMIDE
     Indication: Minimal residual disease
     Dosage: 25 MG (CYCLE 1 DAY 1,21)
     Route: 048
     Dates: start: 20220808, end: 20220808
  6. DEXAMETHASONE [Suspect]
     Active Substance: DEXAMETHASONE
     Indication: Minimal residual disease
     Dosage: 10 MG, QW
     Route: 048
     Dates: start: 20220808, end: 20220808
  7. ELIQUIS [Concomitant]
     Active Substance: APIXABAN
     Indication: Arrhythmia

REACTIONS (4)
  - Device related sepsis [Recovering/Resolving]
  - Staphylococcal bacteraemia [Recovered/Resolved]
  - Septic pulmonary embolism [Recovered/Resolved]
  - Deep vein thrombosis [Not Recovered/Not Resolved]

NARRATIVE: CASE EVENT DATE: 20220923
